FAERS Safety Report 8977906 (Version 1)
Quarter: 2012Q4

REPORT INFORMATION
  Report Type: 
  Country: CH (occurrence: CH)
  Receive Date: 20121220
  Receipt Date: 20121220
  Transmission Date: 20130627
  Serious: Yes (Hospitalization, Other)
  Sender: FDA-Public Use
  Company Number: PHHY2012CH114418

PATIENT
  Age: 74 Year
  Sex: Male
  Weight: 92 kg

DRUGS (2)
  1. VOLTAREN [Suspect]
     Indication: PAIN
     Dosage: 50 mg, TID
     Route: 048
     Dates: start: 20120914, end: 20120919
  2. XARELTO [Interacting]
     Indication: PAIN
     Dosage: 10 mg, QD
     Route: 048
     Dates: start: 20120914, end: 20120919

REACTIONS (6)
  - Gastric ulcer [Recovering/Resolving]
  - Anaemia [Recovering/Resolving]
  - Gastric haemorrhage [Recovering/Resolving]
  - Haematemesis [Recovered/Resolved]
  - Abdominal pain upper [Unknown]
  - Drug interaction [Unknown]
